FAERS Safety Report 17592970 (Version 1)
Quarter: 2020Q1

REPORT INFORMATION
  Report Type: Spontaneous
  Country: US (occurrence: US)
  Receive Date: 20200327
  Receipt Date: 20200327
  Transmission Date: 20200409
  Serious: No
  Sender: FDA-Public Use
  Company Number: US-MAYNE PHARMA-2019MYN000706

PATIENT

DRUGS (1)
  1. DIAZEPAM. [Suspect]
     Active Substance: DIAZEPAM
     Indication: INNER EAR DISORDER

REACTIONS (4)
  - Unevaluable event [Unknown]
  - Dizziness [Unknown]
  - Reaction to excipient [Unknown]
  - Nonspecific reaction [Unknown]
